FAERS Safety Report 8285942 (Version 3)
Quarter: 2013Q2

REPORT INFORMATION
  Report Type: Report from Study
  Country: BR (occurrence: BR)
  Receive Date: 20111213
  Receipt Date: 20130422
  Transmission Date: 20140414
  Serious: Yes (Other)
  Sender: FDA-Public Use
  Company Number: PHHY2011BR106285

PATIENT
  Sex: Female

DRUGS (4)
  1. DIOVAN AMLO FIX [Suspect]
     Indication: HYPERTENSION
     Dosage: 1 DF(160/10 MG), QD IN THE MORNING
  2. DIOVAN AMLO FIX [Suspect]
     Dosage: 0.5 DF (160/10 MG), QD IN THE MORNING
  3. LASIX [Concomitant]
     Indication: HYPERTENSION
     Dosage: 2 DF, DAILY
     Route: 048
  4. LANTUS [Concomitant]
     Indication: DIABETES MELLITUS
     Dosage: 10 DF, DAILY
     Route: 042
     Dates: start: 2005

REACTIONS (8)
  - Diabetic complication [Not Recovered/Not Resolved]
  - Anaemia [Recovered/Resolved]
  - Renal impairment [Not Recovered/Not Resolved]
  - Neuritis [Recovered/Resolved]
  - Musculoskeletal chest pain [Recovered/Resolved]
  - Hypotension [Recovered/Resolved]
  - Hypertension [Recovered/Resolved]
  - Wrong technique in drug usage process [Recovered/Resolved]
